FAERS Safety Report 10540448 (Version 1)
Quarter: 2014Q4

REPORT INFORMATION
  Report Type: Spontaneous
  Country: US (occurrence: None)
  Receive Date: 20141023
  Receipt Date: 20141023
  Transmission Date: 20150529
  Serious: Yes (Other)
  Sender: FDA-Public Use
  Company Number: None

PATIENT
  Age: 26 Year
  Sex: Female
  Weight: 68.04 kg

DRUGS (1)
  1. ZIPRASIDONE [Suspect]
     Active Substance: ZIPRASIDONE
     Indication: SCHIZOPHRENIA
     Dosage: 1 PILL AM 2 PILLS PM, TAKEN BY MOUTH
     Route: 048
     Dates: start: 20140401, end: 20141021

REACTIONS (6)
  - Tremor [None]
  - Eyelid function disorder [None]
  - Muscle contractions involuntary [None]
  - Dyskinesia [None]
  - Pain [None]
  - Musculoskeletal stiffness [None]

NARRATIVE: CASE EVENT DATE: 20141005
